FAERS Safety Report 11784860 (Version 1)
Quarter: 2015Q4

REPORT INFORMATION
  Report Type: Report from Study
  Country: US (occurrence: US)
  Receive Date: 20151130
  Receipt Date: 20151130
  Transmission Date: 20160305
  Serious: No
  Sender: FDA-Public Use
  Company Number: US-AMGEN-USASL2015121137

PATIENT
  Age: 18 Year
  Sex: Female

DRUGS (1)
  1. ENBREL [Suspect]
     Active Substance: ETANERCEPT
     Indication: JUVENILE IDIOPATHIC ARTHRITIS
     Dosage: 50 MG, QWK
     Route: 065

REACTIONS (6)
  - Injection site pain [Unknown]
  - Injection site bruising [Unknown]
  - Anxiety [Unknown]
  - Injection site reaction [Unknown]
  - Aphthous ulcer [Unknown]
  - Injection site erythema [Unknown]

NARRATIVE: CASE EVENT DATE: 2015
